FAERS Safety Report 23744196 (Version 2)
Quarter: 2024Q3

REPORT INFORMATION
  Report Type: Report from Study
  Country: MX (occurrence: MX)
  Receive Date: 20240415
  Receipt Date: 20240816
  Transmission Date: 20241016
  Serious: Yes (Other)
  Sender: RANBAXY
  Company Number: MX-SUN PHARMACEUTICAL INDUSTRIES LTD-2024R1-440894

PATIENT
  Age: 30 Year
  Sex: Male

DRUGS (1)
  1. KETOCONAZOLE [Suspect]
     Active Substance: KETOCONAZOLE
     Indication: Chronic myeloid leukaemia
     Dosage: 200 MILLIGRAM TWICE DAILY
     Route: 048

REACTIONS (1)
  - Thrombocytopenia [Unknown]
